FAERS Safety Report 17536020 (Version 4)
Quarter: 2020Q2

REPORT INFORMATION
  Report Type: Report from Study
  Country: CA (occurrence: CA)
  Receive Date: 20200313
  Receipt Date: 20200402
  Transmission Date: 20200713
  Serious: Yes (Other)
  Sender: FDA-Public Use
  Company Number: CA-ROCHE-2542562

PATIENT
  Sex: Male

DRUGS (1)
  1. OCREVUS [Suspect]
     Active Substance: OCRELIZUMAB
     Indication: PRIMARY PROGRESSIVE MULTIPLE SCLEROSIS
     Dosage: 300 MG AT DAY 0 AND 14, THEN 600 MG EVERY 6 MONTH. ;ONGOING: YES
     Route: 042
     Dates: start: 20190306

REACTIONS (7)
  - Skin infection [Recovering/Resolving]
  - Umbilical hernia [Unknown]
  - Diplopia [Not Recovered/Not Resolved]
  - Urinary tract infection [Recovering/Resolving]
  - Tooth infection [Recovering/Resolving]
  - Tooth abscess [Not Recovered/Not Resolved]
  - Muscle spasticity [Not Recovered/Not Resolved]
